FAERS Safety Report 6608959-9 (Version None)
Quarter: 2010Q1

REPORT INFORMATION
  Report Type: 
  Country: None (occurrence: None)
  Receive Date: 20100301
  Receipt Date: 20100217
  Transmission Date: 20100710
  Serious: Yes (Death, Hospitalization, Other)
  Sender: FDA-Public Use
  Company Number: JP-PFIZER INC-2010016293

PATIENT
  Age: 34 Year
  Sex: Female
  Weight: 51.2 kg

DRUGS (8)
  1. SUNITINIB MALATE [Suspect]
     Indication: RENAL CELL CARCINOMA
     Dosage: 50 MG, 1X/DAY
     Route: 048
     Dates: start: 20090324
  2. CODEINE SULFATE [Concomitant]
     Dosage: UNK
     Route: 048
     Dates: end: 20090731
  3. THYRADIN S [Concomitant]
     Dosage: UNK
     Route: 048
     Dates: start: 20090410
  4. MAGNESIUM OXIDE [Concomitant]
     Dosage: UNK
     Route: 048
  5. CALONAL [Concomitant]
     Route: 048
     Dates: start: 20090406, end: 20090505
  6. SOLANAX [Concomitant]
     Dosage: UNK
     Route: 048
     Dates: start: 20090421, end: 20090817
  7. GASMOTIN [Concomitant]
     Dosage: UNK
     Route: 048
  8. HYDROCORTISONE ACETATE [Concomitant]
     Route: 062
     Dates: end: 20090605

REACTIONS (6)
  - ANAEMIA [None]
  - BLOOD LACTATE DEHYDROGENASE INCREASED [None]
  - DEATH [None]
  - PNEUMONIA [None]
  - PYREXIA [None]
  - URINARY RETENTION [None]
